FAERS Safety Report 15958183 (Version 2)
Quarter: 2019Q1

REPORT INFORMATION
  Report Type: Report from Study
  Country: US (occurrence: US)
  Receive Date: 20190213
  Receipt Date: 20190315
  Transmission Date: 20190417
  Serious: Yes (Death, Hospitalization, Other)
  Sender: FDA-Public Use
  Company Number: PHHY2019US028990

PATIENT
  Age: 63 Year
  Sex: Male

DRUGS (6)
  1. PONATINIB [Suspect]
     Active Substance: PONATINIB
     Indication: METASTASES TO SPINE
  2. PONATINIB [Suspect]
     Active Substance: PONATINIB
     Indication: METASTASES TO PLEURA
  3. PONATINIB [Suspect]
     Active Substance: PONATINIB
     Indication: LUNG ADENOCARCINOMA STAGE IV
     Dosage: UNK
     Route: 065
     Dates: start: 20190122, end: 20190131
  4. TRAMETINIB [Suspect]
     Active Substance: TRAMETINIB
     Indication: LUNG ADENOCARCINOMA STAGE IV
     Dosage: UNK
     Route: 065
     Dates: start: 20190122, end: 20190131
  5. TRAMETINIB [Suspect]
     Active Substance: TRAMETINIB
     Indication: METASTASES TO PLEURA
  6. TRAMETINIB [Suspect]
     Active Substance: TRAMETINIB
     Indication: METASTASES TO SPINE

REACTIONS (8)
  - Product use in unapproved indication [Unknown]
  - Atrial fibrillation [Unknown]
  - Pain [Unknown]
  - Abdominal lymphadenopathy [Unknown]
  - Dyspnoea [Unknown]
  - Death [Fatal]
  - Metastases to bone [Unknown]
  - Abdominal pain upper [Unknown]

NARRATIVE: CASE EVENT DATE: 20190202
